FAERS Safety Report 6527651-2 (Version None)
Quarter: 2010Q1

REPORT INFORMATION
  Report Type: 
  Country: None (occurrence: None)
  Receive Date: 20100105
  Receipt Date: 20091228
  Transmission Date: 20100710
  Serious: Yes (Hospitalization, Other)
  Sender: FDA-Public Use
  Company Number: US-BAYER-200917111BCC

PATIENT
  Age: 55 Year
  Sex: Female
  Weight: 66 kg

DRUGS (5)
  1. ALEVE (CAPLET) [Suspect]
     Indication: BACK PAIN
     Route: 048
     Dates: start: 20010101, end: 20090101
  2. ALEVE (CAPLET) [Suspect]
     Route: 048
     Dates: start: 19950201, end: 19950406
  3. ALEVE (CAPLET) [Suspect]
     Route: 048
     Dates: start: 19960101, end: 20010101
  4. NEXIUM [Concomitant]
     Route: 065
     Dates: start: 20090901
  5. PROLOSES AMEPAROZEL [Concomitant]
     Route: 065

REACTIONS (10)
  - AMNESIA [None]
  - BLOOD PRESSURE INCREASED [None]
  - GASTRIC ULCER [None]
  - GASTRITIS [None]
  - HAEMATEMESIS [None]
  - HAEMATOCHEZIA [None]
  - LIBIDO DECREASED [None]
  - OESOPHAGITIS [None]
  - SUPRAVENTRICULAR TACHYCARDIA [None]
  - SYNCOPE [None]
